FAERS Safety Report 7333278-5 (Version None)
Quarter: 2011Q1

REPORT INFORMATION
  Report Type: 
  Country: None (occurrence: None)
  Receive Date: 20110304
  Receipt Date: 20110221
  Transmission Date: 20110831
  Serious: Yes (Hospitalization, Other)
  Sender: FDA-Public Use
  Company Number: NL-ELI_LILLY_AND_COMPANY-NL201102005964

PATIENT
  Age: 23 Month
  Sex: Female

DRUGS (1)
  1. OLANZAPINE [Suspect]
     Dosage: 30 MG, DAILY (1/D)
     Route: 065

REACTIONS (10)
  - TACHYCARDIA [None]
  - OFF LABEL USE [None]
  - AGITATION [None]
  - DYSARTHRIA [None]
  - ACCIDENTAL OVERDOSE [None]
  - LOSS OF CONSCIOUSNESS [None]
  - DYSKINESIA [None]
  - TOXICITY TO VARIOUS AGENTS [None]
  - HYPERTENSION [None]
  - HYPOTENSION [None]
